FAERS Safety Report 9231259 (Version 2)
Quarter: 2013Q2

REPORT INFORMATION
  Report Type: Spontaneous
  Country: IE (occurrence: IE)
  Receive Date: 20130415
  Receipt Date: 20130426
  Transmission Date: 20140414
  Serious: Yes (Hospitalization)
  Sender: FDA-Public Use
  Company Number: IE-ROCHE-1213447

PATIENT
  Sex: Female
  Weight: 77.4 kg

DRUGS (8)
  1. XOLAIR [Suspect]
     Indication: PRODUCT USED FOR UNKNOWN INDICATION
     Route: 058
  2. XOLAIR [Suspect]
     Route: 058
  3. XOLAIR [Suspect]
     Route: 058
     Dates: start: 20130416
  4. SINGULAIR [Concomitant]
  5. NEILMED SINUS RINSE [Concomitant]
  6. AVAMYS [Concomitant]
     Route: 065
  7. CETRIZINE [Concomitant]
  8. BECLAZONE [Concomitant]
     Route: 065

REACTIONS (2)
  - Deep vein thrombosis [Recovered/Resolved]
  - Fibrin D dimer increased [Unknown]
